FAERS Safety Report 14338301 (Version 4)
Quarter: 2018Q1

REPORT INFORMATION
  Report Type: Report from Study
  Country: BR (occurrence: BR)
  Receive Date: 20171229
  Receipt Date: 20180126
  Transmission Date: 20180509
  Serious: Yes (Hospitalization, Other)
  Sender: FDA-Public Use
  Company Number: BR-ALEXION PHARMACEUTICALS INC.-A201714419

PATIENT
  Age: 1 Year
  Sex: Female
  Weight: 9.87 kg

DRUGS (8)
  1. KANUMA [Suspect]
     Active Substance: SEBELIPASE ALFA
     Dosage: 6 MG/KG, UNK
     Route: 065
  2. KANUMA [Suspect]
     Active Substance: SEBELIPASE ALFA
     Dosage: 3 VIALS, QW
     Route: 065
  3. KANUMA [Suspect]
     Active Substance: SEBELIPASE ALFA
     Dosage: 5 MG/KG, TWICE A WEEK
     Route: 065
  4. KANUMA [Suspect]
     Active Substance: SEBELIPASE ALFA
     Dosage: 5 MG/KG, UNK
     Route: 065
  5. KANUMA [Suspect]
     Active Substance: SEBELIPASE ALFA
     Dosage: 3 VIALS QW
     Route: 065
     Dates: start: 20171227
  6. KANUMA [Suspect]
     Active Substance: SEBELIPASE ALFA
     Indication: LYSOSOMAL ACID LIPASE DEFICIENCY
     Dosage: 2 VIALS, QW
     Route: 042
     Dates: start: 20160308
  7. KANUMA [Suspect]
     Active Substance: SEBELIPASE ALFA
     Dosage: 2 VIALS
     Route: 065
     Dates: end: 20171220
  8. KANUMA [Suspect]
     Active Substance: SEBELIPASE ALFA
     Dosage: 4 MG/KG, UNK
     Route: 042

REACTIONS (15)
  - Sepsis [Unknown]
  - Poor venous access [Recovered/Resolved]
  - Weight increased [Unknown]
  - Ill-defined disorder [Unknown]
  - Abdominal distension [Not Recovered/Not Resolved]
  - Irritability [Unknown]
  - Blood triglycerides increased [Unknown]
  - Diarrhoea [Unknown]
  - Incorrect dose administered [Unknown]
  - Gastrointestinal infection [Unknown]
  - Abdominal pain [Unknown]
  - Neurodevelopmental disorder [Unknown]
  - Pyrexia [Unknown]
  - Decreased appetite [Unknown]
  - Weight gain poor [Unknown]

NARRATIVE: CASE EVENT DATE: 201707
